FAERS Safety Report 8246919-5 (Version None)
Quarter: 2012Q1

REPORT INFORMATION
  Report Type: 
  Country: None (occurrence: None)
  Receive Date: 20120330
  Receipt Date: 20120315
  Transmission Date: 20120608
  Serious: No
  Sender: FDA-Public Use
  Company Number: US-ENDO PHARMACEUTICALS INC.-MSER20120026

PATIENT
  Sex: Male
  Weight: 99.88 kg

DRUGS (2)
  1. MORPHINE SULFATE [Suspect]
     Indication: PAIN
     Dosage: 100 MG
     Route: 048
     Dates: start: 20120301
  2. OPANA ER [Suspect]
     Indication: PAIN
     Route: 048
     Dates: start: 20110901, end: 20120305

REACTIONS (8)
  - HYPERHIDROSIS [None]
  - DRUG WITHDRAWAL SYNDROME [None]
  - BONE PAIN [None]
  - DRUG ABUSE [None]
  - ABDOMINAL PAIN UPPER [None]
  - DRUG INEFFECTIVE [None]
  - INAPPROPRIATE SCHEDULE OF DRUG ADMINISTRATION [None]
  - PAIN [None]
